FAERS Safety Report 15750878 (Version 1)
Quarter: 2018Q4

REPORT INFORMATION
  Report Type: Spontaneous
  Country: US (occurrence: US)
  Receive Date: 20181221
  Receipt Date: 20181221
  Transmission Date: 20190205
  Serious: Yes (Other)
  Sender: FDA-Public Use
  Company Number: US-HERITAGE PHARMACEUTICALS-2018HTG00465

PATIENT
  Age: 30 Year
  Sex: Female

DRUGS (1)
  1. METHIMAZOLE. [Suspect]
     Active Substance: METHIMAZOLE
     Indication: BASEDOW^S DISEASE
     Dosage: 10 MG, 3X/DAY
     Route: 065

REACTIONS (2)
  - Pancytopenia [Recovered/Resolved]
  - Thyrotoxic crisis [Recovered/Resolved]
